FAERS Safety Report 13107069 (Version 2)
Quarter: 2017Q1

REPORT INFORMATION
  Report Type: Spontaneous
  Country: US (occurrence: US)
  Receive Date: 20170111
  Receipt Date: 20170126
  Transmission Date: 20170428
  Serious: Yes (Death, Hospitalization)
  Sender: FDA-Public Use
  Company Number: US-CONCORDIA PHARMACEUTICALS INC.-GSH201701-000126

PATIENT
  Age: 78 Year
  Sex: Female

DRUGS (8)
  1. HYDROXYCHLOROQUINE [Suspect]
     Active Substance: HYDROXYCHLOROQUINE
     Route: 048
  2. OLANZAPINE. [Suspect]
     Active Substance: OLANZAPINE
     Dosage: ONCE
     Route: 048
  3. BUSPIRONE HYDROCHLORIDE. [Suspect]
     Active Substance: BUSPIRONE HYDROCHLORIDE
     Route: 048
  4. SERTRALINE [Suspect]
     Active Substance: SERTRALINE HYDROCHLORIDE
     Route: 048
  5. LEVOTHYROXINE. [Suspect]
     Active Substance: LEVOTHYROXINE
     Route: 048
  6. LISINOPRIL. [Suspect]
     Active Substance: LISINOPRIL
     Route: 048
  7. AMLODIPINE [Suspect]
     Active Substance: AMLODIPINE BESYLATE
     Route: 048
  8. TRANYLCYPROMINE [Suspect]
     Active Substance: TRANYLCYPROMINE
     Route: 048

REACTIONS (16)
  - Extensor plantar response [Unknown]
  - Completed suicide [Fatal]
  - Bundle branch block [Unknown]
  - Respiratory arrest [Fatal]
  - Hyperthermia [Unknown]
  - Heart rate increased [Unknown]
  - Acidosis [Unknown]
  - Muscle twitching [Unknown]
  - Blood pressure increased [Unknown]
  - Unresponsive to stimuli [Unknown]
  - Serotonin syndrome [Unknown]
  - Rhabdomyolysis [Unknown]
  - Myoclonus [Unknown]
  - Depressed level of consciousness [Unknown]
  - Toxicity to various agents [Fatal]
  - Gastrointestinal sounds abnormal [Unknown]
